FAERS Safety Report 9260585 (Version 2)
Quarter: 2013Q2

REPORT INFORMATION
  Report Type: Spontaneous
  Country: US (occurrence: US)
  Receive Date: 20130429
  Receipt Date: 20130609
  Transmission Date: 20140414
  Serious: Yes (Hospitalization, Other)
  Sender: FDA-Public Use
  Company Number: US-SANOFI-AVENTIS-2013SA043194

PATIENT
  Age: 66 Year
  Sex: Female

DRUGS (2)
  1. LANTUS SOLOSTAR [Suspect]
     Indication: TYPE 2 DIABETES MELLITUS
     Dosage: TAKEN FROM:OVER A YEAR AGO?DOSE: 12-50 UNITS
     Route: 051
  2. SOLOSTAR [Suspect]
     Indication: TYPE 2 DIABETES MELLITUS
     Dosage: TAKEN FROM:OVER A YEAR AGO?DOSE: 12-50 UNITS

REACTIONS (6)
  - Cataract [Not Recovered/Not Resolved]
  - Foot amputation [Unknown]
  - Eye disorder [Unknown]
  - Blood potassium increased [Recovered/Resolved]
  - Tremor [Unknown]
  - Blood glucose increased [Unknown]
